FAERS Safety Report 12699249 (Version 1)
Quarter: 2016Q3

REPORT INFORMATION
  Report Type: Report from Study
  Country: US (occurrence: US)
  Receive Date: 20160830
  Receipt Date: 20160830
  Transmission Date: 20161109
  Serious: No
  Sender: FDA-Public Use
  Company Number: US-KAMADA LIMITED-2015US002138

PATIENT

DRUGS (32)
  1. WARFARIN [Concomitant]
     Active Substance: WARFARIN
  2. SINGULAIR [Concomitant]
     Active Substance: MONTELUKAST SODIUM
     Dosage: 10 MG, ONCE DAILY
  3. HERBAL LAXATIVE                    /00142201/ [Concomitant]
     Dosage: UNK, PRN
  4. GLASSIA [Suspect]
     Active Substance: .ALPHA.1-PROTEINASE INHIBITOR HUMAN
     Dosage: UNK
  5. TACROLIMUS. [Concomitant]
     Active Substance: TACROLIMUS
     Dosage: UNK UNK, ONCE DAILY
  6. CRANBERRY                          /01512301/ [Concomitant]
     Active Substance: CRANBERRY
  7. CIPRO [Concomitant]
     Active Substance: CIPROFLOXACIN HYDROCHLORIDE
  8. FUROSEMIDE. [Concomitant]
     Active Substance: FUROSEMIDE
     Dosage: 20 MG, PRN
  9. PREDNISONE. [Concomitant]
     Active Substance: PREDNISONE
     Dosage: 5 MG, DAILY
  10. FLUCONAZOLE. [Concomitant]
     Active Substance: FLUCONAZOLE
     Dosage: 50 ?G, 2 SPRAYS DAILY
  11. ESTRACE [Concomitant]
     Active Substance: ESTRADIOL
     Dosage: 2 NIGHTS PER WEEK
     Route: 067
  12. FLONASE [Concomitant]
     Active Substance: FLUTICASONE PROPIONATE
  13. ASPIRIN                            /00002701/ [Concomitant]
     Active Substance: ASPIRIN
  14. COUMADIN [Concomitant]
     Active Substance: WARFARIN SODIUM
     Dosage: 5 MG, DAILY
  15. ELLURA CRANBERRY CAPSULES [Concomitant]
     Dosage: 36 MG, ONCE DAILY
  16. SIMVASTATIN. [Concomitant]
     Active Substance: SIMVASTATIN
     Dosage: 10 MG, DAILY
  17. VITAMIN B COMPLEX [Concomitant]
     Active Substance: CYANOCOBALAMIN\DEXPANTHENOL\NIACINAMIDE\PYRIDOXINE HYDROCHLORIDE\RIBOFLAVIN 5^-PHOSPHATE SODIUM\THIAMINE HYDROCHLORIDE\VITAMIN B COMPLEX
     Dosage: 1000 ?G, DAILY
  18. PHOSPHORUS [Concomitant]
     Active Substance: PHOSPHORUS
  19. MYFORTIC [Concomitant]
     Active Substance: MYCOPHENOLATE SODIUM
     Dosage: 40 MG, BID
  20. SYNTHROID [Concomitant]
     Active Substance: LEVOTHYROXINE SODIUM
     Dosage: 0.1 MG, ONCE DAILY
  21. MAGNESIUM [Concomitant]
     Active Substance: MAGNESIUM
     Dosage: 250 MG, ONCE DAILY
  22. ADVAIR HFA [Concomitant]
     Active Substance: FLUTICASONE PROPIONATE\SALMETEROL XINAFOATE
     Dosage: 50/500 INHALER 1 PUFF TWICE DAILY
  23. PRENATAL VITAMINS                  /07426201/ [Concomitant]
     Active Substance: ASCORBIC ACID\BIOTIN\MINERALS\NIACIN\RETINOL\TOCOPHEROL\VITAMIN B\VITAMIN D
     Dosage: 5MG, DAILY
  24. OCUVITE [Concomitant]
     Active Substance: VITAMINS
     Dosage: 1 TABLET, DAILY
  25. BABY ASPIRIN [Concomitant]
     Active Substance: ASPIRIN
     Dosage: 1 TABLET, DAILY
  26. XOPENEX [Concomitant]
     Active Substance: LEVALBUTEROL HYDROCHLORIDE
     Dosage: AS NEEDED
  27. GLASSIA [Suspect]
     Active Substance: .ALPHA.1-PROTEINASE INHIBITOR HUMAN
     Indication: ALPHA-1 ANTI-TRYPSIN DEFICIENCY
     Dosage: 60 MG/KG, ONCE WEEKLY
     Route: 042
     Dates: start: 201408
  28. POTASSIUM [Concomitant]
     Active Substance: POTASSIUM
     Dosage: UNK, TWICE DAILY
  29. CALCITRIOL. [Concomitant]
     Active Substance: CALCITRIOL
     Dosage: 0.25 ?G, ONCE DAILY
  30. POTASSIUM CITRATE. [Concomitant]
     Active Substance: POTASSIUM CITRATE
     Dosage: 1000 MG, TWICE DAILY
  31. OMEPRAZOLE. [Concomitant]
     Active Substance: OMEPRAZOLE
     Dosage: 20 MG, TWICE DAILY
  32. HORSE CHESTNUT EXTRACT [Concomitant]
     Active Substance: HORSE CHESTNUT
     Dosage: 300 MG, DAILY

REACTIONS (11)
  - Nasal congestion [Recovered/Resolved]
  - Feeling cold [Recovering/Resolving]
  - Cough [Not Recovered/Not Resolved]
  - Chest discomfort [Not Recovered/Not Resolved]
  - Malaise [Not Recovered/Not Resolved]
  - Heart rate irregular [Unknown]
  - Secretion discharge [Recovered/Resolved]
  - Blood pressure increased [Recovering/Resolving]
  - Sneezing [Recovered/Resolved]
  - Wrong technique in product usage process [Unknown]
  - Oedema peripheral [Not Recovered/Not Resolved]

NARRATIVE: CASE EVENT DATE: 20150227
